FAERS Safety Report 20039248 (Version 4)
Quarter: 2023Q1

REPORT INFORMATION
  Report Type: Spontaneous
  Country: US (occurrence: US)
  Receive Date: 20211105
  Receipt Date: 20230103
  Transmission Date: 20230417
  Serious: Yes (Disabling)
  Sender: FDA-Public Use
  Company Number: US-AMERICAN REGENT INC-2021002873

PATIENT
  Age: 68 Year
  Sex: Female

DRUGS (5)
  1. FERRIC CARBOXYMALTOSE [Suspect]
     Active Substance: FERRIC CARBOXYMALTOSE
     Indication: Iron deficiency anaemia
     Dosage: 750 MG IN 250 ML 0.9 % SODIUM CHLORIDE
     Route: 042
     Dates: start: 20191111, end: 20191111
  2. FERRIC CARBOXYMALTOSE [Suspect]
     Active Substance: FERRIC CARBOXYMALTOSE
     Dosage: 750 MG IN 250 ML 0.9 % SODIUM CHLORIDE
     Route: 042
     Dates: start: 20191118, end: 20191118
  3. VITAMINS NOS [Concomitant]
     Active Substance: VITAMINS
     Indication: Product used for unknown indication
     Dosage: 1 DOSAGE FORM, QD
     Route: 048
  4. CALCIUM CARBONATE\VITAMIN D [Concomitant]
     Active Substance: CALCIUM CARBONATE\VITAMIN D
     Indication: Product used for unknown indication
     Dosage: 600 MG 400 MG  QD
     Route: 048
     Dates: end: 20201004
  5. DESONIDE [Concomitant]
     Active Substance: DESONIDE
     Indication: Product used for unknown indication
     Dosage: 0.5 PERCENT APPLY TO CHEEKS FOR 3 NIGHTS
     Route: 061

REACTIONS (16)
  - Temperature intolerance [Not Recovered/Not Resolved]
  - Gait disturbance [Not Recovered/Not Resolved]
  - Parosmia [Not Recovered/Not Resolved]
  - Pain [Not Recovered/Not Resolved]
  - Myalgia [Recovered/Resolved]
  - Dysgeusia [Recovered/Resolved]
  - Hypophosphataemia [Recovered/Resolved]
  - Dizziness [Not Recovered/Not Resolved]
  - Chest pain [Recovered/Resolved]
  - Headache [Recovered/Resolved]
  - Dyspnoea [Recovered/Resolved]
  - Partner stress [Not Recovered/Not Resolved]
  - Anhedonia [Not Recovered/Not Resolved]
  - Emotional distress [Not Recovered/Not Resolved]
  - Anxiety [Not Recovered/Not Resolved]
  - Product quality issue [Unknown]

NARRATIVE: CASE EVENT DATE: 20191111
